FAERS Safety Report 4472749-6 (Version None)
Quarter: 2004Q4

REPORT INFORMATION
  Report Type: 
  Country: None (occurrence: None)
  Receive Date: 20041013
  Receipt Date: 20041006
  Transmission Date: 20050328
  Serious: Yes (Other)
  Sender: FDA-Public Use
  Company Number: BW-BRISTOL-MYERS SQUIBB COMPANY-12724621

PATIENT
  Age: 29 Year
  Sex: Female

DRUGS (3)
  1. SUSTIVA [Suspect]
     Indication: HIV INFECTION
     Dosage: RANDOMIZATION DATE-20-AUG-2004
  2. STAVUDINE [Suspect]
     Indication: HIV INFECTION
     Dosage: RANDOMIZATION DATE-20-AUG-2004
  3. LAMIVUDINE [Suspect]
     Indication: HIV INFECTION
     Dosage: RANDOMIZATION DATE-20-AUG-2004

REACTIONS (5)
  - DISORIENTATION [None]
  - DIZZINESS [None]
  - HALLUCINATION, AUDITORY [None]
  - INSOMNIA [None]
  - MOOD ALTERED [None]
